FAERS Safety Report 4433719-7 (Version None)
Quarter: 2004Q3

REPORT INFORMATION
  Report Type: 
  Country: None (occurrence: None)
  Receive Date: 20040825
  Receipt Date: 20040825
  Transmission Date: 20050211
  Serious: Yes (Death)
  Sender: FDA-Public Use
  Company Number: None

PATIENT
  Age: 74 Year
  Sex: Male

DRUGS (2)
  1. CIPSLATIN [Suspect]
     Indication: LUNG NEOPLASM MALIGNANT
     Dates: start: 20040809
  2. VEPESID [Suspect]
     Indication: LUNG NEOPLASM MALIGNANT
     Dates: start: 20040809

REACTIONS (8)
  - ARRHYTHMIA [None]
  - CARDIAC DISORDER [None]
  - COMA [None]
  - HEAD INJURY [None]
  - PULMONARY EMBOLISM [None]
  - PULSE PRESSURE DECREASED [None]
  - RESPIRATORY ARREST [None]
  - SPINAL FRACTURE [None]
